FAERS Safety Report 5506969-6 (Version None)
Quarter: 2007Q4

REPORT INFORMATION
  Report Type: 
  Country: None (occurrence: None)
  Receive Date: 20071102
  Receipt Date: 20071026
  Transmission Date: 20080405
  Serious: Yes (Hospitalization, Other)
  Sender: FDA-Public Use
  Company Number: 163-21880-07010006

PATIENT
  Age: 71 Year
  Sex: Male

DRUGS (14)
  1. REVLIMID [Suspect]
     Indication: MYELODYSPLASTIC SYNDROME
     Dosage: 5 - 15MG DAILY, ORAL
     Route: 048
     Dates: start: 20061115, end: 20070901
  2. REVLIMID [Suspect]
  3. VITAMIN B6 [Concomitant]
  4. COUMADIN [Concomitant]
  5. TOPROL-XL [Concomitant]
  6. HYZAAR [Concomitant]
  7. PROCRIT [Concomitant]
  8. ACIPHEX [Concomitant]
  9. BACTRIM [Concomitant]
  10. ZOLOFT [Concomitant]
  11. PLATIL(CISPLATIN) [Concomitant]
  12. CRESTON(ROSUVASTATIN CALCIUM) [Concomitant]
  13. AMBIEN CR [Concomitant]
  14. NEUPOGEN [Concomitant]

REACTIONS (23)
  - ATRIOVENTRICULAR BLOCK FIRST DEGREE [None]
  - CONSTIPATION [None]
  - DIZZINESS [None]
  - DRUG INEFFECTIVE [None]
  - DRY SKIN [None]
  - DYSPNOEA [None]
  - FATIGUE [None]
  - FUNGAL RASH [None]
  - HAEMOGLOBIN DECREASED [None]
  - HEADACHE [None]
  - HEART RATE DECREASED [None]
  - HYPOAESTHESIA [None]
  - HYPOTENSION [None]
  - LOSS OF CONSCIOUSNESS [None]
  - NERVOUSNESS [None]
  - NO THERAPEUTIC RESPONSE [None]
  - PAIN IN EXTREMITY [None]
  - PLATELET COUNT DECREASED [None]
  - POOR PERIPHERAL CIRCULATION [None]
  - PRURITUS [None]
  - SYNCOPE [None]
  - TREMOR [None]
  - WHITE BLOOD CELL COUNT DECREASED [None]
